FAERS Safety Report 6902559-9 (Version None)
Quarter: 2010Q3

REPORT INFORMATION
  Report Type: 
  Country: None (occurrence: None)
  Receive Date: 20100803
  Receipt Date: 20080530
  Transmission Date: 20110219
  Serious: Yes (Other)
  Sender: FDA-Public Use
  Company Number: US-PFIZER INC-2008046330

PATIENT
  Sex: Female
  Weight: 77.6 kg

DRUGS (6)
  1. LYRICA [Suspect]
     Indication: MUSCLE SPASMS
     Dates: start: 20080523
  2. VALIUM [Concomitant]
  3. LORTAB [Concomitant]
  4. PRILOSEC [Concomitant]
  5. CUBICIN [Concomitant]
  6. INVANZ [Concomitant]

REACTIONS (7)
  - ASTHENIA [None]
  - BLOOD CREATINE PHOSPHOKINASE INCREASED [None]
  - GAIT DISTURBANCE [None]
  - MUSCLE SPASMS [None]
  - MYALGIA [None]
  - RED BLOOD CELL COUNT INCREASED [None]
  - WHITE BLOOD CELL COUNT INCREASED [None]
